FAERS Safety Report 17173932 (Version 1)
Quarter: 2019Q4

REPORT INFORMATION
  Report Type: Spontaneous
  Country: JP (occurrence: JP)
  Receive Date: 20191218
  Receipt Date: 20191218
  Transmission Date: 20200122
  Serious: Yes (Hospitalization, Other)
  Sender: FDA-Public Use
  Company Number: JP-ASTELLAS-2019JP026667

PATIENT
  Age: 49 Year
  Sex: Male

DRUGS (6)
  1. PROGRAF [Suspect]
     Active Substance: TACROLIMUS
     Indication: DERMATOMYOSITIS
  2. PROGRAF [Suspect]
     Active Substance: TACROLIMUS
     Indication: INTERSTITIAL LUNG DISEASE
     Dosage: 4 MG, ONCE DAILY, IN THE MORNING
     Route: 048
     Dates: start: 20191004
  3. PROGRAF [Suspect]
     Active Substance: TACROLIMUS
     Indication: POLYMYOSITIS
  4. PROGRAF [Suspect]
     Active Substance: TACROLIMUS
     Indication: DERMATOMYOSITIS
  5. PROGRAF [Suspect]
     Active Substance: TACROLIMUS
     Indication: INTERSTITIAL LUNG DISEASE
     Dosage: 4.5 MG/DAY, UNKNOWN FREQ.
     Route: 048
  6. PROGRAF [Suspect]
     Active Substance: TACROLIMUS
     Indication: POLYMYOSITIS

REACTIONS (2)
  - Off label use [Unknown]
  - Pneumonia aspiration [Recovered/Resolved]

NARRATIVE: CASE EVENT DATE: 20191004
